FAERS Safety Report 5477930-5 (Version None)
Quarter: 2007Q4

REPORT INFORMATION
  Report Type: 
  Country: None (occurrence: None)
  Receive Date: 20071005
  Receipt Date: 20070924
  Transmission Date: 20080405
  Serious: Yes (Hospitalization, Other)
  Sender: FDA-Public Use
  Company Number: CA-JNJFOC-20070606082

PATIENT
  Sex: Female
  Weight: 63 kg

DRUGS (5)
  1. REMICADE [Suspect]
     Indication: CROHN'S DISEASE
     Route: 042
  2. TYLENOL (CAPLET) [Concomitant]
     Route: 048
  3. BENADRYL [Concomitant]
     Route: 048
  4. PREDNISONE [Concomitant]
     Route: 048
  5. IMURAN [Concomitant]
     Route: 048

REACTIONS (4)
  - HYPOKALAEMIA [None]
  - INFUSION RELATED REACTION [None]
  - MUSCULAR WEAKNESS [None]
  - PARAESTHESIA [None]
